FAERS Safety Report 11867292 (Version 1)
Quarter: 2015Q4

REPORT INFORMATION
  Report Type: Report from Study
  Country: FR (occurrence: FR)
  Receive Date: 20151224
  Receipt Date: 20151224
  Transmission Date: 20160305
  Serious: Yes (Death, Hospitalization, Other)
  Sender: FDA-Public Use
  Company Number: FR-BRISTOL-MYERS SQUIBB COMPANY-BMS-2015-045788

PATIENT
  Age: 50 Year
  Sex: Male
  Weight: 62 kg

DRUGS (3)
  1. LYRICA [Concomitant]
     Active Substance: PREGABALIN
     Indication: PAIN
     Dosage: 75 MG, BID
     Route: 048
     Dates: start: 20130926
  2. IXPRIM [Concomitant]
     Active Substance: ACETAMINOPHEN\TRAMADOL HYDROCHLORIDE
     Indication: PAIN
     Dosage: 6 TAB, QD
     Route: 048
     Dates: start: 20140925
  3. NIVOLUMAB [Suspect]
     Active Substance: NIVOLUMAB
     Indication: NON-SMALL CELL LUNG CANCER
     Dosage: 210 MG, UNK
     Route: 065
     Dates: start: 20150617

REACTIONS (15)
  - Dermabrasion [Unknown]
  - Neoplasm progression [Fatal]
  - Transfusion [Unknown]
  - Deafness [Unknown]
  - Anaemia [Not Recovered/Not Resolved]
  - Wound [Unknown]
  - Neutrophil count abnormal [Unknown]
  - Nausea [Recovered/Resolved]
  - Autoimmune colitis [Recovered/Resolved]
  - Coma [Unknown]
  - Joint lock [Unknown]
  - White blood cell disorder [Unknown]
  - Pain [Recovering/Resolving]
  - Decreased appetite [Unknown]
  - Blood sodium abnormal [Unknown]

NARRATIVE: CASE EVENT DATE: 20150629
